FAERS Safety Report 14027031 (Version 2)
Quarter: 2017Q4

REPORT INFORMATION
  Report Type: Report from Study
  Country: PL (occurrence: PL)
  Receive Date: 20170929
  Receipt Date: 20171012
  Transmission Date: 20180321
  Serious: No
  Sender: FDA-Public Use
  Company Number: PL-ARIAD PHARMACEUTICALS, INC-2017PL008963

PATIENT
  Age: 46 Year
  Sex: Male
  Weight: 85 kg

DRUGS (10)
  1. PONATINIB [Suspect]
     Active Substance: PONATINIB
     Indication: CHRONIC MYELOID LEUKAEMIA
     Dosage: 30 MG, QD
     Route: 048
     Dates: start: 20161010, end: 20161030
  2. PONATINIB [Suspect]
     Active Substance: PONATINIB
     Dosage: 15 MG, QD
     Route: 048
     Dates: start: 20170515
  3. FOLIC ACID. [Concomitant]
     Active Substance: FOLIC ACID
     Indication: THROMBOCYTOPENIA
     Dosage: UNK
     Route: 048
     Dates: start: 20170103
  4. FRAGMIN [Concomitant]
     Active Substance: DALTEPARIN SODIUM
     Indication: EMBOLISM
     Dosage: UNK
     Route: 058
     Dates: start: 20161010
  5. PYRIDOXINE HYDROCHLORIDE. [Concomitant]
     Active Substance: PYRIDOXINE HYDROCHLORIDE
     Indication: THROMBOCYTOPENIA
     Dosage: UNK
  6. PONATINIB [Suspect]
     Active Substance: PONATINIB
     Dosage: 30 MG, QD
     Route: 048
     Dates: start: 20170227, end: 20170425
  7. PONATINIB [Suspect]
     Active Substance: PONATINIB
     Dosage: 30 MG, QD
     Route: 048
     Dates: start: 20161114, end: 20170129
  8. PRIMACOR [Concomitant]
     Active Substance: MILRINONE LACTATE
     Indication: HYPERTENSION
     Dosage: UNK
     Route: 048
     Dates: start: 20161109
  9. NOLIPREL FORTE [Concomitant]
     Indication: HYPERTENSION
     Dosage: UNK
     Route: 048
     Dates: start: 20161021
  10. ENCORTON [Concomitant]
     Active Substance: PREDNISONE
     Indication: THROMBOCYTOPENIA
     Dosage: UNK
     Route: 048
     Dates: start: 20170216

REACTIONS (1)
  - Left ventricular failure [Not Recovered/Not Resolved]

NARRATIVE: CASE EVENT DATE: 20170918
